FAERS Safety Report 21539123 (Version 2)
Quarter: 2023Q1

REPORT INFORMATION
  Report Type: Report from Study
  Country: US (occurrence: US)
  Receive Date: 20221102
  Receipt Date: 20230111
  Transmission Date: 20230417
  Serious: Yes (Other)
  Sender: FDA-Public Use
  Company Number: US-ABBVIE-4182212

PATIENT
  Age: 55 Year
  Sex: Female
  Weight: 122.4 kg

DRUGS (1)
  1. RINVOQ [Suspect]
     Active Substance: UPADACITINIB
     Indication: Rheumatoid arthritis
     Dosage: FORM STRENGTH: 15 MILLIGRAM
     Route: 048
     Dates: start: 202002

REACTIONS (6)
  - Device failure [Recovered/Resolved]
  - Femur fracture [Recovering/Resolving]
  - Hip surgery [Unknown]
  - Osteoporosis [Not Recovered/Not Resolved]
  - Knee operation [Unknown]
  - Hip arthroplasty [Not Recovered/Not Resolved]

NARRATIVE: CASE EVENT DATE: 20210901
